FAERS Safety Report 11746991 (Version 1)
Quarter: 2015Q4

REPORT INFORMATION
  Report Type: Spontaneous
  Country: US (occurrence: US)
  Receive Date: 20151117
  Receipt Date: 20151117
  Transmission Date: 20160304
  Serious: Yes (Hospitalization, Other)
  Sender: FDA-Public Use
  Company Number: US-PFIZER INC-2015387676

PATIENT
  Age: 61 Year
  Sex: Male

DRUGS (2)
  1. MORPHINE SULFATE. [Suspect]
     Active Substance: MORPHINE SULFATE
     Dosage: 270 MG, DAILY
  2. MORPHINE SULFATE. [Suspect]
     Active Substance: MORPHINE SULFATE
     Dosage: 40 MG, DAILY

REACTIONS (5)
  - Drug ineffective [Unknown]
  - Pulmonary fibrosis [Unknown]
  - Loss of consciousness [Unknown]
  - Pneumonia [Unknown]
  - Somnolence [Unknown]
